FAERS Safety Report 9067740 (Version 1)
Quarter: 2013Q1

REPORT INFORMATION
  Report Type: Spontaneous
  Country: FR (occurrence: FR)
  Receive Date: 20130128
  Receipt Date: 20130128
  Transmission Date: 20140127
  Serious: Yes (Hospitalization)
  Sender: FDA-Public Use
  Company Number: FR-ASTRAZENECA-2013SE04220

PATIENT
  Age: 45 Year
  Sex: Male

DRUGS (1)
  1. XEROQUEL [Suspect]
     Indication: BIPOLAR I DISORDER
     Route: 048
     Dates: start: 20120710, end: 20121113

REACTIONS (2)
  - Cardiac discomfort [Unknown]
  - Lipids abnormal [Unknown]
